FAERS Safety Report 20675210 (Version 1)
Quarter: 2022Q2

REPORT INFORMATION
  Report Type: Spontaneous
  Country: SK (occurrence: SK)
  Receive Date: 20220405
  Receipt Date: 20220405
  Transmission Date: 20220721
  Serious: Yes (Death)
  Sender: FDA-Public Use
  Company Number: SK-TAKEDA-2022TUS022504

PATIENT
  Sex: Male
  Weight: 97 kg

DRUGS (1)
  1. HYQVIA [Suspect]
     Active Substance: HUMAN IMMUNOGLOBULIN G\HYALURONIDASE RECOMBINANT HUMAN
     Indication: Product used for unknown indication
     Dosage: UNK, MONTHLY
     Route: 065
     Dates: start: 20180725

REACTIONS (1)
  - COVID-19 [Fatal]
